FAERS Safety Report 5049847-1 (Version None)
Quarter: 2006Q3

REPORT INFORMATION
  Report Type: 
  Country: None (occurrence: None)
  Receive Date: 20060706
  Receipt Date: 20060627
  Transmission Date: 20061208
  Serious: Yes (Hospitalization)
  Sender: FDA-Public Use
  Company Number: 231628K06USA

PATIENT
  Age: 50 Year
  Sex: Female

DRUGS (4)
  1. REBIF [Suspect]
     Indication: MULTIPLE SCLEROSIS
     Dosage: 44 MCG, 3 IN 1 WEEKS, SUBCUTANEOUS
     Route: 058
     Dates: start: 20040322
  2. WELLBUTRIN [Concomitant]
  3. ZOCOR [Concomitant]
  4. EFFEXOR [Concomitant]

REACTIONS (8)
  - BLOOD CATECHOLAMINES INCREASED [None]
  - CONVULSION [None]
  - CORONARY ARTERY DISEASE [None]
  - FEELING HOT AND COLD [None]
  - HEADACHE [None]
  - HYPERTENSION [None]
  - NAUSEA [None]
  - VOMITING [None]
